FAERS Safety Report 14572494 (Version 1)
Quarter: 2018Q1

REPORT INFORMATION
  Report Type: Report from Study
  Country: US (occurrence: US)
  Receive Date: 20180226
  Receipt Date: 20180226
  Transmission Date: 20180509
  Serious: Yes (Hospitalization)
  Sender: FDA-Public Use
  Company Number: US-AMGEN-USACT2018023724

PATIENT
  Age: 77 Year
  Sex: Male
  Weight: 82.4 kg

DRUGS (20)
  1. CARFILZOMIB [Suspect]
     Active Substance: CARFILZOMIB
     Dosage: 56 MG/M2, PER CHEMO REGIM
     Route: 042
  2. RITUXIMAB. [Suspect]
     Active Substance: RITUXIMAB
     Indication: DIFFUSE LARGE B-CELL LYMPHOMA
     Dosage: UNK, PER CHEMO REGIM
     Route: 042
  3. NEULASTA [Concomitant]
     Active Substance: PEGFILGRASTIM
     Dosage: 6 MG, UNK
     Route: 042
     Dates: start: 20180209
  4. CALCIUM CITRATE WITH VITAMIN D3 [Concomitant]
     Indication: SUPPLEMENTATION THERAPY
     Dosage: 250 UNIT, QD
     Route: 048
     Dates: start: 2003
  5. ALLOPURINOL. [Concomitant]
     Active Substance: ALLOPURINOL
     Indication: PROPHYLAXIS
     Dosage: 300 MG, QD
     Route: 048
     Dates: start: 20171204, end: 20171211
  6. CYCLOPHOSPHAMIDE. [Suspect]
     Active Substance: CYCLOPHOSPHAMIDE
     Indication: DIFFUSE LARGE B-CELL LYMPHOMA
     Dosage: UNK UNK, PER CHEMO REGIM
     Route: 042
  7. VITAMIN D3 [Concomitant]
     Active Substance: CHOLECALCIFEROL
     Indication: SUPPLEMENTATION THERAPY
     Dosage: 2000 UNIT, QD
     Route: 048
     Dates: start: 2015
  8. RITUXIMAB. [Suspect]
     Active Substance: RITUXIMAB
     Dosage: 758 MG, PER CHEMO REGIM
     Route: 042
  9. PROTONIX [Concomitant]
     Active Substance: PANTOPRAZOLE SODIUM
     Dosage: 40 MG, QD
     Route: 048
  10. CYCLOPHOSPHAMIDE. [Suspect]
     Active Substance: CYCLOPHOSPHAMIDE
     Dosage: 1515 MG, PER CHEMO REGIM
     Route: 042
  11. VINCRISTINE [Suspect]
     Active Substance: VINCRISTINE
     Indication: DIFFUSE LARGE B-CELL LYMPHOMA
     Dosage: UNK UNK, PER CHEMO REGIM
     Route: 042
  12. ZOFRAN [Concomitant]
     Active Substance: ONDANSETRON HYDROCHLORIDE
     Indication: NAUSEA
     Dosage: 8 MG, Q8H AS NECESSARY
     Route: 048
     Dates: start: 20171204
  13. FERROUS FUMARATE [Concomitant]
     Active Substance: FERROUS FUMARATE
     Indication: SUPPLEMENTATION THERAPY
     Dosage: 456 MG, QD
     Route: 048
     Dates: start: 2003
  14. ACYCLOVIR. [Concomitant]
     Active Substance: ACYCLOVIR
     Indication: ANTIVIRAL TREATMENT
     Dosage: 400 MG, BID
     Route: 048
     Dates: start: 20171204
  15. PREDNISONE. [Concomitant]
     Active Substance: PREDNISONE
     Indication: LYMPHOMA
     Dosage: 100 MG, QD
     Route: 048
     Dates: start: 20171206
  16. CARFILZOMIB [Suspect]
     Active Substance: CARFILZOMIB
     Indication: DIFFUSE LARGE B-CELL LYMPHOMA
     Dosage: UNK UNK, PER CHEMO REGIM
     Route: 042
  17. DOXORUBICIN [Suspect]
     Active Substance: DOXORUBICIN
     Dosage: 101 MG, PER CHEMO REGIM
     Route: 042
  18. VINCRISTINE [Suspect]
     Active Substance: VINCRISTINE
     Dosage: 2 MG, PER CHEMO REGIM
     Route: 042
  19. DOXORUBICIN [Suspect]
     Active Substance: DOXORUBICIN
     Indication: DIFFUSE LARGE B-CELL LYMPHOMA
     Dosage: UNK, PER CHEMO REGIM
     Route: 042
  20. PEPCID [Concomitant]
     Active Substance: FAMOTIDINE
     Indication: GASTRIC ULCER
     Dosage: 20 MG, BID
     Route: 048
     Dates: start: 2012

REACTIONS (3)
  - Diarrhoea [Unknown]
  - Pancytopenia [Unknown]
  - Febrile neutropenia [Unknown]

NARRATIVE: CASE EVENT DATE: 20180217
